FAERS Safety Report 16594764 (Version 1)
Quarter: 2019Q3

REPORT INFORMATION
  Report Type: Other
  Country: US (occurrence: US)
  Receive Date: 20190718
  Receipt Date: 20190718
  Transmission Date: 20191004
  Serious: No
  Sender: FDA-Public Use
  Company Number: US-SWEDISH ORPHAN BIOVITRUM-2019US0307

PATIENT
  Sex: Male

DRUGS (11)
  1. VITAMIN D [Concomitant]
     Active Substance: VITAMIN D NOS
  2. ATORVASTATIN [Concomitant]
     Active Substance: ATORVASTATIN
  3. ASPIRIN. [Concomitant]
     Active Substance: ASPIRIN
  4. METHOTREXATE. [Concomitant]
     Active Substance: METHOTREXATE
  5. ACYCLOVIR. [Concomitant]
     Active Substance: ACYCLOVIR
  6. LEUCOVORIN. [Concomitant]
     Active Substance: LEUCOVORIN
  7. KINERET [Suspect]
     Active Substance: ANAKINRA
     Route: 058
     Dates: start: 20190129
  8. BRILINTA [Concomitant]
     Active Substance: TICAGRELOR
  9. LOSARTAN. [Concomitant]
     Active Substance: LOSARTAN
  10. PREDNISONE. [Concomitant]
     Active Substance: PREDNISONE
  11. METOPROLOL. [Concomitant]
     Active Substance: METOPROLOL

REACTIONS (2)
  - Injection site pain [Unknown]
  - Injection site erythema [Unknown]
